FAERS Safety Report 8003105-1 (Version None)
Quarter: 2011Q4

REPORT INFORMATION
  Report Type: 
  Country: None (occurrence: None)
  Receive Date: 20111222
  Receipt Date: 20111212
  Transmission Date: 20120403
  Serious: Yes (Hospitalization, Other)
  Sender: FDA-Public Use
  Company Number: PHHY2011JP106299

PATIENT
  Age: 62 Year
  Sex: Male

DRUGS (2)
  1. IMATINIB MESYLATE [Suspect]
     Indication: NEOPLASM PROGRESSION
     Dosage: 600 MG, PER DAY
     Route: 048
  2. IMATINIB MESYLATE [Suspect]
     Dosage: 300 MG, PER DAY
     Route: 048

REACTIONS (5)
  - TUMOUR INVASION [None]
  - TENDERNESS [None]
  - RASH [None]
  - MESENTERIC PANNICULITIS [None]
  - PAIN IN EXTREMITY [None]
